FAERS Safety Report 21671896 (Version 2)
Quarter: 2022Q4

REPORT INFORMATION
  Report Type: Other
  Country: US (occurrence: None)
  Receive Date: 20221202
  Receipt Date: 20221207
  Transmission Date: 20230113
  Serious: No
  Sender: FDA-Public Use
  Company Number: US-ROCHE-3229334

PATIENT
  Age: 66 Year
  Sex: Male
  Weight: 86.260 kg

DRUGS (3)
  1. OCREVUS [Suspect]
     Active Substance: OCRELIZUMAB
     Indication: Multiple sclerosis
     Dosage: INFUSE 300 MG ON DAY 1, THEN 300MG ON DAY 15 THEN 600MG, IV EVERY 6 MONTHS, DATE OF TREATMENT: 29/AP
     Route: 065
     Dates: start: 2020
  2. PAXLOVID [Concomitant]
     Active Substance: NIRMATRELVIR\RITONAVIR
     Indication: COVID-19
     Dosage: (2 PILLS-DIFFERENT) 300MG/100MG DOSE PACK FOR TOTAL OF 5 DAYS
     Dates: start: 20221125
  3. INFLUENZA VIRUS VACCINE [Concomitant]
     Active Substance: INFLUENZA VIRUS VACCINE
     Dates: start: 20221011

REACTIONS (4)
  - COVID-19 [Recovering/Resolving]
  - Cystitis [Recovered/Resolved]
  - Immunodeficiency [Unknown]
  - Prostatomegaly [Unknown]

NARRATIVE: CASE EVENT DATE: 20210301
